FAERS Safety Report 6666086-9 (Version None)
Quarter: 2010Q2

REPORT INFORMATION
  Report Type: 
  Country: None (occurrence: None)
  Receive Date: 20100402
  Receipt Date: 20100323
  Transmission Date: 20101027
  Serious: Yes (Life-Threatening, Other)
  Sender: FDA-Public Use
  Company Number: CH-PFIZER INC-2010037392

PATIENT
  Age: 27 Year
  Sex: Male
  Weight: 75 kg

DRUGS (3)
  1. XANAX [Suspect]
     Dosage: 2 MG, 3X/DAY
     Route: 048
     Dates: start: 20100208, end: 20100211
  2. METHADONE [Interacting]
     Dosage: 25 MG, 2X/DAY
     Route: 048
     Dates: start: 20100210, end: 20100210
  3. METHADONE [Interacting]
     Dosage: 60 MG, 1X/DAY
     Route: 048
     Dates: start: 20100211, end: 20100211

REACTIONS (4)
  - BRADYPNOEA [None]
  - COMA [None]
  - DRUG INTERACTION [None]
  - OXYGEN SATURATION DECREASED [None]
